FAERS Safety Report 23336528 (Version 1)
Quarter: 2023Q4

REPORT INFORMATION
  Report Type: Spontaneous
  Country: JP (occurrence: JP)
  Receive Date: 20231226
  Receipt Date: 20231226
  Transmission Date: 20240110
  Serious: Yes (Death)
  Sender: FDA-Public Use
  Company Number: JP-JNJFOC-20231261553

PATIENT
  Age: 7 Month

DRUGS (1)
  1. EPOPROSTENOL [Suspect]
     Active Substance: EPOPROSTENOL
     Indication: Pulmonary hypertension
     Dosage: DOSE UNKNOWN
     Route: 041

REACTIONS (3)
  - Pulmonary hypertension [Fatal]
  - Pulmonary capillary haemangiomatosis [Fatal]
  - Off label use [Unknown]
